FAERS Safety Report 5894094-4 (Version None)
Quarter: 2008Q3

REPORT INFORMATION
  Report Type: 
  Country: None (occurrence: None)
  Receive Date: 20080923
  Receipt Date: 20080703
  Transmission Date: 20090109
  Serious: No
  Sender: FDA-Public Use
  Company Number: US-ASTRAZENECA-2007UW28988

PATIENT
  Age: 632 Month
  Sex: Female
  Weight: 88.2 kg

DRUGS (7)
  1. SEROQUEL [Suspect]
     Indication: NERVOUS SYSTEM DISORDER
     Dosage: 25MG, 100MG, 200MG, 300MG
     Route: 048
     Dates: start: 20020301, end: 20040901
  2. SEROQUEL [Suspect]
     Indication: SLEEP DISORDER
     Dosage: 25MG, 100MG, 200MG, 300MG
     Route: 048
     Dates: start: 20020301, end: 20040901
  3. SEROQUEL [Suspect]
     Indication: ANXIETY
     Dosage: 25MG, 100MG, 200MG, 300MG
     Route: 048
     Dates: start: 20020301, end: 20040901
  4. PAXIL [Concomitant]
     Dates: start: 20020501, end: 20021101
  5. WELLBUTRIN [Concomitant]
     Dates: start: 20020101
  6. LEXAPRO [Concomitant]
     Dates: start: 20030101
  7. TRAZODONE HCL [Concomitant]
     Dates: start: 20030101

REACTIONS (4)
  - BACK INJURY [None]
  - BACK PAIN [None]
  - DIABETES MELLITUS [None]
  - WEIGHT INCREASED [None]
